FAERS Safety Report 11102246 (Version 1)
Quarter: 2015Q2

REPORT INFORMATION
  Report Type: Spontaneous
  Country: TN (occurrence: TN)
  Receive Date: 20150511
  Receipt Date: 20150511
  Transmission Date: 20150821
  Serious: Yes (Other)
  Sender: FDA-Public Use
  Company Number: TN-ACCORD-030621

PATIENT
  Age: 54 Year
  Sex: Female

DRUGS (2)
  1. MYCOPHENOLIC ACID. [Suspect]
     Active Substance: MYCOPHENOLIC ACID
     Indication: LIVER TRANSPLANT
  2. TACROLIMUS. [Suspect]
     Active Substance: TACROLIMUS
     Indication: LIVER TRANSPLANT

REACTIONS (6)
  - Hypoalbuminaemia [Unknown]
  - Weight decreased [Unknown]
  - Iron deficiency anaemia [Unknown]
  - Transaminases increased [Recovering/Resolving]
  - Hypocholesterolaemia [Unknown]
  - Lymphoid tissue hyperplasia [Recovering/Resolving]
